FAERS Safety Report 4875572-3 (Version None)
Quarter: 2006Q1

REPORT INFORMATION
  Report Type: 
  Country: None (occurrence: None)
  Receive Date: 20060105
  Receipt Date: 20051221
  Transmission Date: 20060701
  Serious: Yes (Hospitalization)
  Sender: FDA-Public Use
  Company Number: S05-FRA-05767-01

PATIENT
  Age: 92 Year
  Sex: Male

DRUGS (7)
  1. CITALOPRAM HYDROBROMIDE [Suspect]
     Dosage: 2 UNK QD
     Dates: start: 20050315, end: 20050722
  2. RISPERDAL [Suspect]
     Indication: DYSTHYMIC DISORDER
     Dosage: 2
     Dates: start: 20050315, end: 20050719
  3. ACETAMINOPHEN [Suspect]
     Dosage: 4 G QD
     Dates: end: 20050719
  4. XANAX [Suspect]
     Indication: ANXIETY
     Dates: start: 20050315, end: 20050719
  5. OFLOXACIN [Concomitant]
  6. FUROSEMIDE [Concomitant]
  7. ASPEGIC 1000 [Concomitant]

REACTIONS (2)
  - CARDIAC FAILURE [None]
  - HEPATIC FAILURE [None]
